FAERS Safety Report 4326441-9 (Version None)
Quarter: 2004Q1

REPORT INFORMATION
  Report Type: 
  Country: None (occurrence: None)
  Receive Date: 20040325
  Receipt Date: 20040126
  Transmission Date: 20041129
  Serious: Yes (Life-Threatening, Hospitalization)
  Sender: FDA-Public Use
  Company Number: 0400002EN0020P

PATIENT
  Age: 11 Year
  Sex: Male
  Weight: 52 kg

DRUGS (2)
  1. ONCASPAR [Suspect]
     Indication: NEOPLASM
     Dosage: 3600 U ONCE IM
     Route: 030
     Dates: start: 20040126, end: 20040126
  2. VINCRISTINE [Concomitant]

REACTIONS (4)
  - ANAPHYLACTIC REACTION [None]
  - HYPOTENSION [None]
  - RESPIRATORY DISTRESS [None]
  - URTICARIA GENERALISED [None]
